FAERS Safety Report 9410281 (Version 2)
Quarter: 2013Q3

REPORT INFORMATION
  Report Type: Spontaneous
  Country: IN (occurrence: IN)
  Receive Date: 20130719
  Receipt Date: 20130809
  Transmission Date: 20140515
  Serious: Yes (Other)
  Sender: FDA-Public Use
  Company Number: IN-BAXTER-2013BAX027739

PATIENT
  Sex: 0

DRUGS (1)
  1. FIBERIN SEALANT KIT, FREEZE DRIED, (TISSEEL, KIT) [Suspect]
     Indication: PRODUCT USED FOR UNKNOWN INDICATION
     Route: 065

REACTIONS (1)
  - Drug ineffective [Unknown]
